FAERS Safety Report 8575203-5 (Version None)
Quarter: 2012Q3

REPORT INFORMATION
  Report Type: 
  Country: None (occurrence: None)
  Receive Date: 20120807
  Receipt Date: 20120730
  Transmission Date: 20120928
  Serious: Yes (Hospitalization)
  Sender: FDA-Public Use
  Company Number: AU-SANOFI-AVENTIS-2012SA055028

PATIENT
  Sex: Female

DRUGS (2)
  1. LANTUS [Suspect]
     Route: 065
  2. NOVORAPID [Concomitant]

REACTIONS (5)
  - BLOOD GLUCOSE ABNORMAL [None]
  - HORMONE LEVEL ABNORMAL [None]
  - LACERATION [None]
  - DIABETIC KETOACIDOSIS [None]
  - FLUID RETENTION [None]
